FAERS Safety Report 5241379-0 (Version None)
Quarter: 2007Q1

REPORT INFORMATION
  Report Type: 
  Country: None (occurrence: None)
  Receive Date: 20070212
  Receipt Date: 20070212
  Transmission Date: 20070707
  Serious: Yes (Other)
  Sender: FDA-Public Use
  Company Number: None

PATIENT
  Age: 70 Year
  Sex: Female
  Weight: 66.2252 kg

DRUGS (1)
  1. ZOCOR [Suspect]
     Indication: HYPERTENSION
     Dosage: 10MG 1 QD ORAL
     Route: 048

REACTIONS (3)
  - ALOPECIA [None]
  - DRUG HYPERSENSITIVITY [None]
  - RASH [None]
